FAERS Safety Report 9356296 (Version 2)
Quarter: 2013Q4

REPORT INFORMATION
  Report Type: Spontaneous
  Country: US (occurrence: US)
  Receive Date: 20130619
  Receipt Date: 20131028
  Transmission Date: 20140711
  Serious: Yes (Life-Threatening, Other)
  Sender: FDA-Public Use
  Company Number: US-BAYER-2013-074069

PATIENT
  Age: 22 Year
  Sex: Female
  Weight: 50.34 kg

DRUGS (4)
  1. BEYAZ [Suspect]
     Indication: CONTRACEPTION
  2. ZITHROMAX [Concomitant]
     Dosage: UNK
     Dates: start: 20120223
  3. VERAMYST [Concomitant]
     Dosage: 2 SPRAYS IN EACH NOSTRIL DAILY
     Dates: start: 20120405
  4. ALLEGRA [Concomitant]
     Dosage: 180 MG, QD
     Route: 048
     Dates: start: 20120405

REACTIONS (10)
  - Deep vein thrombosis [None]
  - Vena cava thrombosis [None]
  - Axillary vein thrombosis [None]
  - Injury [None]
  - Pain [None]
  - Anxiety [None]
  - Anhedonia [None]
  - Fear of disease [None]
  - Emotional distress [None]
  - Subclavian vein thrombosis [None]
